FAERS Safety Report 7736243-9 (Version None)
Quarter: 2011Q3

REPORT INFORMATION
  Report Type: 
  Country: None (occurrence: None)
  Receive Date: 20110902
  Receipt Date: 20110823
  Transmission Date: 20111222
  Serious: Yes (Other)
  Sender: FDA-Public Use
  Company Number: 1000022227

PATIENT
  Age: 35 Year
  Sex: Male
  Weight: 74 kg

DRUGS (9)
  1. PARIET (RABEPRAZOLE SODIUM) (RABEPRAZOLE SODIUM) [Concomitant]
  2. ESCITALOPRAM [Suspect]
     Indication: DEPRESSION
     Dosage: 10 MG (10 MG, 1 IN 1 D), ORAL
     Route: 048
     Dates: start: 20100717, end: 20110528
  3. DOLIPRANE (PARACETAMOL) (PARACETAMOL) [Concomitant]
  4. GAVISCON (GAVISCON) GAVISCON) [Concomitant]
  5. MOXYDAR (MOXYDAR) (MOXYDAR) [Concomitant]
  6. NEXIUM [Concomitant]
  7. ESCITALOPRAM [Suspect]
     Indication: DEPRESSION
     Dosage: 10 MG (10 MG, 1 IN 1 D), ORAL, 20 MG (20 MG, 1 IN 1 D), ORAL
     Route: 048
     Dates: start: 20090825, end: 20100219
  8. ESCITALOPRAM [Suspect]
     Indication: DEPRESSION
     Dosage: 10 MG (10 MG, 1 IN 1 D), ORAL, 20 MG (20 MG, 1 IN 1 D), ORAL
     Route: 048
     Dates: start: 20100220, end: 20100716
  9. LEXOMIL (BROMAZEPAM (BROMAZEPAM) [Concomitant]

REACTIONS (2)
  - LABILE HYPERTENSION [None]
  - ALCOHOLISM [None]
